FAERS Safety Report 15514952 (Version 1)
Quarter: 2018Q4

REPORT INFORMATION
  Report Type: Spontaneous
  Country: US (occurrence: US)
  Receive Date: 20181017
  Receipt Date: 20181017
  Transmission Date: 20190205
  Serious: Yes (Hospitalization)
  Sender: FDA-Public Use
  Company Number: US-ROCHE-2200080

PATIENT
  Age: 36 Year
  Sex: Female

DRUGS (18)
  1. FEROSUL [Concomitant]
  2. PREMARIN [Concomitant]
     Active Substance: ESTROGENS, CONJUGATED
  3. ZOLPIDEM [Concomitant]
     Active Substance: ZOLPIDEM\ZOLPIDEM TARTRATE
  4. AMITRIPTYLIN [Concomitant]
     Active Substance: AMITRIPTYLINE
  5. FAMOTIDINE. [Concomitant]
     Active Substance: FAMOTIDINE
  6. LEVOTHYROXIN [Concomitant]
     Active Substance: LEVOTHYROXINE
  7. NUTROPIN [Suspect]
     Active Substance: SOMATROPIN
     Indication: HYPOPITUITARISM
     Dosage: ONGOING
     Route: 058
     Dates: start: 20160301
  8. FUROSEMIDE. [Concomitant]
     Active Substance: FUROSEMIDE
  9. BACLOFEN. [Concomitant]
     Active Substance: BACLOFEN
  10. HYDROCORT (HYDROCORTISONE ACETATE) [Concomitant]
  11. MONTELUKAST [Concomitant]
     Active Substance: MONTELUKAST SODIUM
  12. POTASSIUM CHLORIDE. [Concomitant]
     Active Substance: POTASSIUM CHLORIDE
  13. CLONAZEPAM. [Concomitant]
     Active Substance: CLONAZEPAM
     Route: 065
  14. DIVALPROEX [Concomitant]
     Active Substance: DIVALPROEX SODIUM
  15. LYRICA [Concomitant]
     Active Substance: PREGABALIN
  16. TEMAZEPAM. [Concomitant]
     Active Substance: TEMAZEPAM
  17. DESMOPRESSIN [Concomitant]
     Active Substance: DESMOPRESSIN
  18. VENLAFAXINE [Concomitant]
     Active Substance: VENLAFAXINE HYDROCHLORIDE

REACTIONS (1)
  - Pneumonia [Unknown]

NARRATIVE: CASE EVENT DATE: 201810
